FAERS Safety Report 6094603-9 (Version None)
Quarter: 2009Q1

REPORT INFORMATION
  Report Type: 
  Country: None (occurrence: None)
  Receive Date: 20090226
  Receipt Date: 20090216
  Transmission Date: 20090719
  Serious: Yes (Other)
  Sender: FDA-Public Use
  Company Number: PHHY2009HN05527

PATIENT
  Age: 81 Year
  Sex: Female

DRUGS (2)
  1. DIOVAN [Suspect]
     Indication: HYPERTENSION
     Dosage: 320 MG, QD
     Route: 048
  2. ASPIRIN [Concomitant]
     Indication: PROPHYLAXIS

REACTIONS (1)
  - HYPERTENSIVE CRISIS [None]
